FAERS Safety Report 19901712 (Version 2)
Quarter: 2021Q4

REPORT INFORMATION
  Report Type: Spontaneous
  Country: CA (occurrence: CA)
  Receive Date: 20210930
  Receipt Date: 20211112
  Transmission Date: 20220303
  Serious: Yes (Other)
  Sender: FDA-Public Use
  Company Number: CA-PFIZER INC-202101151598

PATIENT
  Age: 77 Year
  Sex: Female

DRUGS (2)
  1. ESTRING [Suspect]
     Active Substance: ESTRADIOL
     Indication: Uterine prolapse
     Dosage: UNK
  2. ESTRIOL [Suspect]
     Active Substance: ESTRIOL
     Indication: Uterine prolapse
     Dosage: UNK

REACTIONS (1)
  - Vulvovaginal mycotic infection [Unknown]
